FAERS Safety Report 10279041 (Version 1)
Quarter: 2014Q3

REPORT INFORMATION
  Report Type: Spontaneous
  Country: US (occurrence: US)
  Receive Date: 20140707
  Receipt Date: 20140707
  Transmission Date: 20150326
  Serious: No
  Sender: FDA-Public Use
  Company Number: US-B.I. PHARMACEUTICALS,INC./RIDGEFIELD-2014-BI-29765BP

PATIENT
  Age: 66 Year
  Sex: Female

DRUGS (1)
  1. JENTADUETO [Suspect]
     Active Substance: LINAGLIPTIN\METFORMIN HYDROCHLORIDE
     Indication: DIABETES MELLITUS
     Dosage: STRENGTH: 2.5 MG / 500 MG; DAILY DOSE: 5 MG / 1000 MG
     Route: 048
     Dates: start: 20140625

REACTIONS (3)
  - Confusional state [Not Recovered/Not Resolved]
  - Feeling jittery [Not Recovered/Not Resolved]
  - Asthenia [Not Recovered/Not Resolved]

NARRATIVE: CASE EVENT DATE: 20140625
